FAERS Safety Report 5115227-3 (Version None)
Quarter: 2006Q3

REPORT INFORMATION
  Report Type: 
  Country: None (occurrence: None)
  Receive Date: 20060926
  Receipt Date: 20060913
  Transmission Date: 20061208
  Serious: Yes (Other)
  Sender: FDA-Public Use
  Company Number: JP-AVENTIS-200612842JP

PATIENT
  Age: 84 Year
  Sex: Male

DRUGS (6)
  1. AMARYL [Suspect]
     Indication: DIABETES MELLITUS
     Route: 048
     Dates: start: 20050801, end: 20060913
  2. BASEN [Concomitant]
  3. PANTOSIN [Concomitant]
  4. ALOSENN [Concomitant]
  5. LAXOBERON [Concomitant]
  6. GLYCERIN ENEMA [Concomitant]
     Route: 054

REACTIONS (1)
  - BLOOD CREATINE PHOSPHOKINASE INCREASED [None]
